FAERS Safety Report 10396819 (Version 3)
Quarter: 2014Q4

REPORT INFORMATION
  Report Type: Spontaneous
  Country: BR (occurrence: BR)
  Receive Date: 20140820
  Receipt Date: 20141218
  Transmission Date: 20150528
  Serious: Yes (Death, Hospitalization, Other)
  Sender: FDA-Public Use
  Company Number: BR-ASTRAZENECA-2014SE60849

PATIENT
  Age: 71 Year
  Sex: Male
  Weight: 72 kg

DRUGS (13)
  1. MILGAMMA [Concomitant]
     Active Substance: VITAMIN B
     Indication: PAIN IN EXTREMITY
     Route: 048
  2. SUSTRATE [Concomitant]
     Active Substance: PROPATYL NITRATE
     Indication: HEART ALTERNATION
     Route: 048
  3. AMLODIPINE [Concomitant]
     Active Substance: AMLODIPINE BESYLATE
     Route: 048
  4. BRILINTA [Suspect]
     Active Substance: TICAGRELOR
     Indication: MYOCARDIAL INFARCTION
     Route: 048
     Dates: start: 20130606, end: 201406
  5. ASA [Concomitant]
     Active Substance: ASPIRIN
     Indication: MYOCARDIAL INFARCTION
     Route: 048
  6. MILGAMMA [Concomitant]
     Active Substance: VITAMIN B
     Indication: CARDIOVASCULAR DISORDER
     Route: 048
  7. ATORVASTATIN [Concomitant]
     Active Substance: ATORVASTATIN
     Indication: BLOOD CHOLESTEROL INCREASED
     Route: 048
  8. CARDIZEM [Concomitant]
     Active Substance: DILTIAZEM HYDROCHLORIDE
     Indication: HEART ALTERNATION
     Route: 048
  9. OMEPRAZOLE. [Suspect]
     Active Substance: OMEPRAZOLE
     Indication: GASTRITIS PROPHYLAXIS
     Route: 048
     Dates: start: 20130606
  10. LOSARTAN [Concomitant]
     Active Substance: LOSARTAN
     Indication: HYPERTENSION
     Route: 048
  11. FUROSEMIDE. [Concomitant]
     Active Substance: FUROSEMIDE
     Indication: PERIPHERAL SWELLING
     Route: 048
     Dates: start: 201308
  12. ATORVASTATIN [Concomitant]
     Active Substance: ATORVASTATIN
     Indication: BLOOD TRIGLYCERIDES INCREASED
     Route: 048
  13. CAVERDILOL [Concomitant]
     Indication: HEART ALTERNATION
     Route: 048

REACTIONS (15)
  - Pain in extremity [Unknown]
  - Intestinal prolapse [Not Recovered/Not Resolved]
  - Septic shock [Fatal]
  - Renal impairment [Recovered/Resolved]
  - Carotid artery occlusion [Not Recovered/Not Resolved]
  - Fatigue [Unknown]
  - Cardiac failure [Fatal]
  - Coma [Unknown]
  - Rectal haemorrhage [Not Recovered/Not Resolved]
  - Multi-organ failure [Fatal]
  - Ischaemic cardiomyopathy [Fatal]
  - Constipation [Not Recovered/Not Resolved]
  - Generalised oedema [Recovering/Resolving]
  - Infarction [Fatal]
  - Urinary tract infection [Recovered/Resolved]

NARRATIVE: CASE EVENT DATE: 2013
